FAERS Safety Report 5136703-3 (Version None)
Quarter: 2006Q4

REPORT INFORMATION
  Report Type: 
  Country: None (occurrence: None)
  Receive Date: 20061023
  Receipt Date: 20061011
  Transmission Date: 20070319
  Serious: Yes (Hospitalization, Other)
  Sender: FDA-Public Use
  Company Number: 2006126367

PATIENT
  Age: 69 Year
  Sex: Female
  Weight: 70.3075 kg

DRUGS (4)
  1. LIPITOR [Suspect]
     Indication: BLOOD CHOLESTEROL INCREASED
     Dosage: 10 MG (10 MG, 1 IN 1 D)
  2. SYNTHROID [Concomitant]
  3. PREMARIN [Concomitant]
  4. CALCIUM WITH VITAMIN D (CALCIUM PHOSPHATE, CALCIUM SODIUM LACTATE, ERG [Concomitant]

REACTIONS (6)
  - BLADDER DISORDER [None]
  - CARDIAC DISORDER [None]
  - CATARACT [None]
  - HYPOAESTHESIA [None]
  - KNEE ARTHROPLASTY [None]
  - PARAESTHESIA [None]
